FAERS Safety Report 10254128 (Version 3)
Quarter: 2014Q3

REPORT INFORMATION
  Report Type: Report from Study
  Country: CA (occurrence: CA)
  Receive Date: 20140623
  Receipt Date: 20140702
  Transmission Date: 20150326
  Serious: Yes (Other)
  Sender: FDA-Public Use
  Company Number: PHHY2014CA068276

PATIENT
  Age: 32 Year
  Sex: Female

DRUGS (1)
  1. EXTAVIA [Suspect]
     Active Substance: INTERFERON BETA-1B
     Indication: RELAPSING-REMITTING MULTIPLE SCLEROSIS
     Dosage: UNK UKN, UNK
     Route: 058
     Dates: start: 20120718, end: 20140415

REACTIONS (4)
  - Multiple sclerosis relapse [Unknown]
  - Pyrexia [Unknown]
  - Central nervous system lesion [Unknown]
  - Drug intolerance [Unknown]

NARRATIVE: CASE EVENT DATE: 201306
